FAERS Safety Report 8174903-9 (Version None)
Quarter: 2012Q1

REPORT INFORMATION
  Report Type: 
  Country: None (occurrence: None)
  Receive Date: 20120229
  Receipt Date: 20110616
  Transmission Date: 20120608
  Serious: No
  Sender: FDA-Public Use
  Company Number: US-GLAXOSMITHKLINE-A0932997A

PATIENT
  Age: 45 Year
  Sex: Male

DRUGS (1)
  1. VALTREX [Suspect]
     Indication: ORAL HERPES
     Dates: start: 20100101

REACTIONS (2)
  - DRY SKIN [None]
  - PRURITUS [None]
